FAERS Safety Report 4731482-3 (Version None)
Quarter: 2005Q3

REPORT INFORMATION
  Report Type: 
  Country: None (occurrence: None)
  Receive Date: 20050802
  Receipt Date: 20050722
  Transmission Date: 20060218
  Serious: Yes (Hospitalization)
  Sender: FDA-Public Use
  Company Number: JP-MERCK-0507USA04347

PATIENT
  Age: 45 Year
  Sex: Male

DRUGS (6)
  1. PEPCID [Suspect]
     Route: 048
  2. PROGRAF [Suspect]
     Route: 048
     Dates: start: 20050223
  3. PROGRAF [Suspect]
     Route: 042
     Dates: start: 20050221, end: 20050222
  4. CELLCEPT [Suspect]
     Route: 065
  5. MEDROL [Suspect]
     Route: 065
  6. COZAAR [Suspect]
     Route: 048

REACTIONS (1)
  - THROMBOPHLEBITIS SUPERFICIAL [None]
